FAERS Safety Report 9871480 (Version 1)
Quarter: 2014Q1

REPORT INFORMATION
  Report Type: Spontaneous
  Country: US (occurrence: None)
  Receive Date: 20140204
  Receipt Date: 20140204
  Transmission Date: 20141002
  Serious: Yes (Other)
  Sender: FDA-Public Use
  Company Number: None

PATIENT
  Age: 77 Year
  Sex: Female
  Weight: 81.19 kg

DRUGS (8)
  1. CLONIDINE [Suspect]
     Indication: HYPERTENSION
     Route: 048
  2. ARMOUA [Concomitant]
  3. THYROID [Concomitant]
  4. FELODIPINE [Concomitant]
  5. LASIX [Concomitant]
  6. COREG [Concomitant]
  7. LOSACTINE [Concomitant]
  8. VIT D [Concomitant]

REACTIONS (5)
  - Drug intolerance [None]
  - Dry mouth [None]
  - Dysgeusia [None]
  - Oral discomfort [None]
  - Hypoaesthesia oral [None]
